FAERS Safety Report 17012363 (Version 2)
Quarter: 2019Q4

REPORT INFORMATION
  Report Type: Report from Study
  Country: US (occurrence: US)
  Receive Date: 20191108
  Receipt Date: 20191205
  Transmission Date: 20200122
  Serious: Yes (Hospitalization)
  Sender: FDA-Public Use
  Company Number: US-ACTELION-A-NJ2018-177670

PATIENT
  Age: 67 Year
  Sex: Female
  Weight: 63.49 kg

DRUGS (6)
  1. VELETRI [Suspect]
     Active Substance: EPOPROSTENOL
     Dosage: 30 NG/KG, PER MIN
     Route: 042
  2. LETAIRIS [Concomitant]
     Active Substance: AMBRISENTAN
  3. VELETRI [Suspect]
     Active Substance: EPOPROSTENOL
     Indication: PULMONARY ARTERIAL HYPERTENSION
     Dosage: 16 NG/KG, PER MIN
     Route: 042
  4. ADCIRCA [Concomitant]
     Active Substance: TADALAFIL
  5. ZOFRAN [Concomitant]
     Active Substance: ONDANSETRON HYDROCHLORIDE
  6. VELETRI [Suspect]
     Active Substance: EPOPROSTENOL
     Dosage: 40 NG/KG, PER MIN
     Route: 042

REACTIONS (11)
  - Drug dose omission by device [Unknown]
  - Catheter management [Unknown]
  - Flushing [Unknown]
  - Nausea [Unknown]
  - Device occlusion [Recovered/Resolved]
  - Device leakage [Recovered/Resolved]
  - Device malfunction [Unknown]
  - Diarrhoea [Unknown]
  - Device alarm issue [Recovered/Resolved]
  - Cardiac failure [Recovered/Resolved]
  - Device breakage [Recovered/Resolved]

NARRATIVE: CASE EVENT DATE: 20190911
